FAERS Safety Report 25785149 (Version 1)
Quarter: 2025Q3

REPORT INFORMATION
  Report Type: Spontaneous
  Country: EU (occurrence: EU)
  Receive Date: 20250910
  Receipt Date: 20250910
  Transmission Date: 20251020
  Serious: Yes (Other)
  Sender: AUROBINDO
  Company Number: EU-AFSSAPS-PA2025000788

PATIENT
  Age: 76 Year
  Sex: Female
  Weight: 61 kg

DRUGS (2)
  1. LEVOFLOXACIN [Suspect]
     Active Substance: LEVOFLOXACIN
     Indication: Device related infection
     Route: 048
     Dates: start: 20250711, end: 20250807
  2. RIFAMPIN [Concomitant]
     Active Substance: RIFAMPIN
     Indication: Device related infection
     Route: 048
     Dates: start: 20250711

REACTIONS (1)
  - Tendon pain [Recovering/Resolving]

NARRATIVE: CASE EVENT DATE: 20250804
